FAERS Safety Report 5105287-8 (Version None)
Quarter: 2006Q3

REPORT INFORMATION
  Report Type: 
  Country: None (occurrence: None)
  Receive Date: 20060907
  Receipt Date: 20060814
  Transmission Date: 20061208
  Serious: Yes (Hospitalization)
  Sender: FDA-Public Use
  Company Number: 2005BH001345

PATIENT
  Sex: 0

DRUGS (1)
  1. ALBUMIN (HUMAN) [Suspect]
     Indication: ISCHAEMIC STROKE

REACTIONS (1)
  - PULMONARY OEDEMA [None]
